FAERS Safety Report 8900791 (Version 1)
Quarter: 2012Q4

REPORT INFORMATION
  Report Type: 
  Country: JP (occurrence: JP)
  Receive Date: 20121109
  Receipt Date: 20121109
  Transmission Date: 20130627
  Serious: Yes (Other)
  Sender: FDA-Public Use
  Company Number: JP-ASTELLAS-2012JP010472

PATIENT
  Sex: Male

DRUGS (2)
  1. PROGRAF [Suspect]
     Indication: BONE MARROW TRANSPLANT
     Dosage: 0.5 mg, Unknown/D
     Route: 048
  2. GRACEPTOR [Concomitant]
     Indication: BONE MARROW TRANSPLANT
     Route: 048

REACTIONS (4)
  - Red blood cell count decreased [Unknown]
  - Diarrhoea [Unknown]
  - White blood cell count decreased [Unknown]
  - Platelet count decreased [Unknown]
